FAERS Safety Report 7813235 (Version 4)
Quarter: 2013Q4

REPORT INFORMATION
  Report Type: Not Available
  Country: GR (occurrence: GR)
  Receive Date: 20110215
  Receipt Date: 20131014
  Transmission Date: 20140711
  Serious: Yes (Life-Threatening, Other)
  Sender: FDA-Public Use
  Company Number: GR-CUBIST-2011S1000054

PATIENT
  Age: 60 Year
  Sex: Male
  Weight: 72 kg

DRUGS (5)
  1. CUBICIN [Suspect]
     Indication: SOFT TISSUE INFECTION
     Route: 042
     Dates: start: 20101215, end: 20110103
  2. CUBICIN [Suspect]
     Indication: SOFT TISSUE INFECTION
     Route: 042
     Dates: start: 20101215, end: 20110103
  3. MOXIFLOXACIN [Concomitant]
     Indication: PRODUCT USED FOR UNKNOWN INDICATION
     Route: 065
     Dates: start: 20110115, end: 20110120
  4. LINEZOLID [Suspect]
     Indication: LOWER RESPIRATORY TRACT INFECTION
     Route: 042
     Dates: start: 20110121, end: 20110204
  5. CHEMOTHERAPEUTICS NOS [Concomitant]
     Indication: NON-HODGKIN^S LYMPHOMA
     Route: 065
     Dates: start: 20101229

REACTIONS (4)
  - Respiratory failure [Not Recovered/Not Resolved]
  - Non-Hodgkin^s lymphoma [Unknown]
  - Lobar pneumonia [Recovered/Resolved with Sequelae]
  - Thrombocytopenia [Not Recovered/Not Resolved]
